FAERS Safety Report 5032275-2 (Version None)
Quarter: 2006Q2

REPORT INFORMATION
  Report Type: 
  Country: None (occurrence: None)
  Receive Date: 20060619
  Receipt Date: 20060601
  Transmission Date: 20061013
  Serious: Yes (Death, Hospitalization)
  Sender: FDA-Public Use
  Company Number: 226238

PATIENT
  Age: 62 Year

DRUGS (2)
  1. AVASTIN [Suspect]
     Indication: PANCREATIC CARCINOMA
     Dosage: 5 MG/KG, INTRAVENOUS
     Route: 042
     Dates: start: 20060313
  2. GEMCITABINE [Suspect]
     Indication: PANCREATIC CARCINOMA
     Dosage: 1 G/M2, INTRAVENOUS
     Route: 042
     Dates: start: 20060313

REACTIONS (8)
  - ABDOMINAL DISTENSION [None]
  - ABDOMINAL PAIN LOWER [None]
  - ASCITES [None]
  - BACTERIAL INFECTION [None]
  - DEHYDRATION [None]
  - DISEASE PROGRESSION [None]
  - PANCREATIC NECROSIS [None]
  - SEPSIS [None]
